FAERS Safety Report 14255993 (Version 2)
Quarter: 2018Q1

REPORT INFORMATION
  Report Type: Spontaneous
  Country: JP (occurrence: JP)
  Receive Date: 20171206
  Receipt Date: 20180116
  Transmission Date: 20180508
  Serious: Yes (Other)
  Sender: FDA-Public Use
  Company Number: JP-PFIZER INC-2017515015

PATIENT
  Age: 71 Year
  Sex: Male

DRUGS (4)
  1. RHEUMATREX [Suspect]
     Active Substance: METHOTREXATE SODIUM
     Dosage: 6 MG, UNK
     Route: 048
     Dates: start: 20171228
  2. RHEUMATREX [Suspect]
     Active Substance: METHOTREXATE SODIUM
     Dosage: 2 MG, UNK
     Route: 048
     Dates: start: 20100316
  3. RHEUMATREX [Suspect]
     Active Substance: METHOTREXATE SODIUM
     Dosage: 4 MG, UNK
     Route: 048
     Dates: start: 20171130
  4. INFLUENZA VACCINE [Suspect]
     Active Substance: INFLUENZA VIRUS VACCINE
     Dosage: UNK
     Dates: start: 20171110, end: 20171110

REACTIONS (2)
  - Condition aggravated [Not Recovered/Not Resolved]
  - Rheumatoid arthritis [Not Recovered/Not Resolved]

NARRATIVE: CASE EVENT DATE: 20171117
